FAERS Safety Report 8713156 (Version 2)
Quarter: 2012Q4

REPORT INFORMATION
  Report Type: 
  Country: US (occurrence: US)
  Receive Date: 20120808
  Receipt Date: 20120905
  Transmission Date: 20130627
  Serious: No
  Sender: FDA-Public Use
  Company Number: US-PFIZER INC-2012189400

PATIENT
  Age: 85 Year
  Sex: Female
  Weight: 50.79 kg

DRUGS (2)
  1. FLECTOR [Suspect]
     Indication: INFLAMMATION
     Dosage: UNK
     Dates: start: 20120801, end: 20120803
  2. RAMIPRIL [Concomitant]
     Indication: BLOOD PRESSURE ABNORMAL
     Dosage: 2.5 mg, daily
     Route: 048
     Dates: start: 2010

REACTIONS (8)
  - Oropharyngeal pain [Recovered/Resolved]
  - Dysphagia [Recovered/Resolved]
  - Pruritus generalised [Recovered/Resolved]
  - Urticaria [Recovered/Resolved]
  - Vulvovaginal discomfort [Not Recovered/Not Resolved]
  - Cough [Recovered/Resolved]
  - Rhinorrhoea [Recovered/Resolved]
  - Body temperature fluctuation [Recovered/Resolved]
